FAERS Safety Report 4752010-2 (Version None)
Quarter: 2005Q3

REPORT INFORMATION
  Report Type: 
  Country: None (occurrence: None)
  Receive Date: 20050822
  Receipt Date: 20050706
  Transmission Date: 20060218
  Serious: No
  Sender: FDA-Public Use
  Company Number: PHEH2005US07461

PATIENT
  Sex: Female

DRUGS (3)
  1. ZELNORM [Suspect]
     Indication: CONSTIPATION
     Dosage: 6 MG, ONCE/SINGLE, ORAL
     Route: 048
     Dates: start: 20050702, end: 20050702
  2. BENICAR [Concomitant]
  3. CLONIDINE [Concomitant]

REACTIONS (5)
  - ASTHENIA [None]
  - COLD SWEAT [None]
  - DIZZINESS [None]
  - MUSCLE TIGHTNESS [None]
  - VISUAL DISTURBANCE [None]
